FAERS Safety Report 7265606-3 (Version None)
Quarter: 2011Q1

REPORT INFORMATION
  Report Type: 
  Country: None (occurrence: None)
  Receive Date: 20110131
  Receipt Date: 20110126
  Transmission Date: 20110831
  Serious: Yes (Other)
  Sender: FDA-Public Use
  Company Number: DE-BAYER-2011-008638

PATIENT
  Age: 30 Year
  Sex: Female
  Weight: 65 kg

DRUGS (1)
  1. MIRENA [Suspect]
     Indication: PRODUCT USED FOR UNKNOWN INDICATION
     Dosage: UNK
     Dates: start: 20020101, end: 20100801

REACTIONS (8)
  - ANXIETY [None]
  - ANGINA PECTORIS [None]
  - ACNE [None]
  - DIZZINESS [None]
  - BACK PAIN [None]
  - PANIC REACTION [None]
  - HEADACHE [None]
  - SLEEP DISORDER [None]
